FAERS Safety Report 10177200 (Version 5)
Quarter: 2014Q2

REPORT INFORMATION
  Report Type: Spontaneous
  Country: JP (occurrence: JP)
  Receive Date: 20140516
  Receipt Date: 20140627
  Transmission Date: 20141212
  Serious: Yes (Life-Threatening, Other)
  Sender: FDA-Public Use
  Company Number: JP-PFIZER INC-2014132287

PATIENT
  Age: 59 Year
  Sex: Female
  Weight: 55 kg

DRUGS (1)
  1. ZITHROMAC SR [Suspect]
     Dosage: 2 G, SINGLE
     Route: 048
     Dates: start: 20140508, end: 20140508

REACTIONS (2)
  - Shock [Recovered/Resolved]
  - Abdominal pain [Recovered/Resolved]
